FAERS Safety Report 26059020 (Version 1)
Quarter: 2025Q4

REPORT INFORMATION
  Report Type: Spontaneous
  Country: US (occurrence: US)
  Receive Date: 20251118
  Receipt Date: 20251118
  Transmission Date: 20260117
  Serious: No
  Sender: COLLEGIUM PHARMACEUTICAL
  Company Number: US-COLLEGIUM PHARMACEUTICAL, INC.-20241101475

PATIENT

DRUGS (2)
  1. BELBUCA [Suspect]
     Active Substance: BUPRENORPHINE HYDROCHLORIDE
     Indication: Pain
     Dosage: 150 MICROGRAM, BID (EVERY 12 HOURS)
     Route: 002
     Dates: start: 202406
  2. BELBUCA [Suspect]
     Active Substance: BUPRENORPHINE HYDROCHLORIDE
     Dosage: 600 MICROGRAM, BID (EVERY 12 HOURS)
     Route: 002
     Dates: end: 202410

REACTIONS (2)
  - Dental caries [Unknown]
  - Tooth erosion [Unknown]

NARRATIVE: CASE EVENT DATE: 20240101
